FAERS Safety Report 16245925 (Version 1)
Quarter: 2019Q2

REPORT INFORMATION
  Report Type: Spontaneous
  Country: US (occurrence: US)
  Receive Date: 20190426
  Receipt Date: 20190426
  Transmission Date: 20190711
  Serious: Yes (Hospitalization, Other)
  Sender: FDA-Public Use
  Company Number: US-SA-2019SA110839

PATIENT
  Age: 11 Year
  Sex: Male

DRUGS (1)
  1. CEREZYME [Suspect]
     Active Substance: IMIGLUCERASE
     Indication: GAUCHER^S DISEASE
     Dosage: 2400 U, QOW
     Route: 041
     Dates: start: 20120712

REACTIONS (3)
  - Product dose omission [Unknown]
  - Pyrexia [Unknown]
  - Hospitalisation [Unknown]
